FAERS Safety Report 8235631-4 (Version None)
Quarter: 2012Q1

REPORT INFORMATION
  Report Type: 
  Country: None (occurrence: None)
  Receive Date: 20120326
  Receipt Date: 20120314
  Transmission Date: 20120608
  Serious: Yes (Hospitalization)
  Sender: FDA-Public Use
  Company Number: US-BRISTOL-MYERS SQUIBB COMPANY-16447229

PATIENT
  Age: 82 Year
  Sex: Male

DRUGS (4)
  1. SAXAGLIPTIN [Suspect]
     Indication: TYPE 2 DIABETES MELLITUS
     Route: 048
     Dates: start: 20110823
  2. GLYBURIDE [Suspect]
     Indication: TYPE 2 DIABETES MELLITUS
  3. BLINDED: PLACEBO [Suspect]
     Indication: TYPE 2 DIABETES MELLITUS
     Route: 048
     Dates: start: 20110823
  4. INSULIN [Suspect]
     Indication: TYPE 2 DIABETES MELLITUS
     Dosage: 12 IU/U

REACTIONS (2)
  - BACTERIAL DISEASE CARRIER [None]
  - CHRONIC OBSTRUCTIVE PULMONARY DISEASE [None]
